FAERS Safety Report 7374918-4 (Version None)
Quarter: 2011Q1

REPORT INFORMATION
  Report Type: 
  Country: None (occurrence: None)
  Receive Date: 20110317
  Receipt Date: 20110228
  Transmission Date: 20110831
  Serious: Yes (Other)
  Sender: FDA-Public Use
  Company Number: PD-42

PATIENT
  Age: 18 Year
  Sex: Male

DRUGS (1)
  1. OSVAREN (110 MG CALCIUM/60MG MAGNESIUM) [Suspect]
     Indication: HYPERPHOSPHATAEMIA
     Dosage: SEE SECTION 5 ^DOSAGE^
     Dates: start: 20070101, end: 20090101

REACTIONS (5)
  - ARRHYTHMIA [None]
  - ELECTROLYTE IMBALANCE [None]
  - METABOLIC DISORDER [None]
  - HYPERMAGNESAEMIA [None]
  - MUSCLE SPASMS [None]
